FAERS Safety Report 8833608 (Version 1)
Quarter: 2012Q4

REPORT INFORMATION
  Report Type: 
  Country: AU (occurrence: AU)
  Receive Date: 20121010
  Receipt Date: 20121010
  Transmission Date: 20130627
  Serious: Yes (Hospitalization)
  Sender: FDA-Public Use
  Company Number: AU-ROCHE-1101251

PATIENT
  Sex: Female
  Weight: 134 kg

DRUGS (10)
  1. ROCURONIUM [Suspect]
     Indication: PRODUCT USED FOR UNKNOWN INDICATION
     Dosage: Rocuronium Sandoz
     Route: 065
  2. COVERSYL [Concomitant]
  3. GLICLAZIDE [Concomitant]
  4. METFORMIN HYDROCHLORIDE [Concomitant]
  5. GRANISETRON [Suspect]
     Indication: PRODUCT USED FOR UNKNOWN INDICATION
  6. MIDAZOLAM MALEATE [Suspect]
     Indication: PRODUCT USED FOR UNKNOWN INDICATION
     Route: 065
  7. CEPHAZOLIN SODIUM [Suspect]
     Indication: PRODUCT USED FOR UNKNOWN INDICATION
     Route: 065
  8. FENTANYL [Suspect]
     Indication: PRODUCT USED FOR UNKNOWN INDICATION
  9. GENTAMICIN SULPHATE [Suspect]
     Indication: PRODUCT USED FOR UNKNOWN INDICATION
     Route: 048
  10. PROPOFOL [Suspect]
     Indication: PRODUCT USED FOR UNKNOWN INDICATION

REACTIONS (4)
  - Urosepsis [Recovered/Resolved]
  - Multi-organ failure [Recovered/Resolved]
  - Hyperthermia malignant [Recovered/Resolved]
  - Blood pressure increased [None]
